FAERS Safety Report 7470841-5 (Version None)
Quarter: 2011Q2

REPORT INFORMATION
  Report Type: 
  Country: None (occurrence: None)
  Receive Date: 20110510
  Receipt Date: 20110404
  Transmission Date: 20111010
  Serious: No
  Sender: FDA-Public Use
  Company Number: US-BAYER-2011-030436

PATIENT
  Sex: Female

DRUGS (2)
  1. ALEVE (CAPLET) [Suspect]
     Indication: BACK PAIN
     Dosage: 220 MG, BID, BOTTLE COUNT 40S
     Route: 048
     Dates: start: 20110401, end: 20110402
  2. ALEVE (CAPLET) [Suspect]
     Indication: BACK PAIN
     Dosage: 220 MG, BID
     Route: 048
     Dates: start: 20110310, end: 20110401

REACTIONS (2)
  - FOREIGN BODY [None]
  - ODYNOPHAGIA [None]
